FAERS Safety Report 4435064-2 (Version None)
Quarter: 2004Q3

REPORT INFORMATION
  Report Type: 
  Country: None (occurrence: None)
  Receive Date: 20040827
  Receipt Date: 20040817
  Transmission Date: 20050211
  Serious: Yes (Death, Hospitalization)
  Sender: FDA-Public Use
  Company Number: NL-JNJFOC-20040806535

PATIENT
  Sex: Female

DRUGS (3)
  1. RISPERDAL CONSTA [Suspect]
     Indication: SCHIZOPHRENIA
     Route: 030
     Dates: start: 20040331
  2. ARTANE [Concomitant]
     Indication: EXTRAPYRAMIDAL DISORDER
     Route: 065
     Dates: start: 20040220
  3. PANTOPRAZOLE SODIUM [Concomitant]
     Route: 065

REACTIONS (4)
  - CHOLELITHIASIS [None]
  - COMA [None]
  - NECROSIS [None]
  - PANCREATITIS [None]
